FAERS Safety Report 9154474 (Version 1)
Quarter: 2013Q1

REPORT INFORMATION
  Report Type: Report from Study
  Country: US (occurrence: US)
  Receive Date: 20130311
  Receipt Date: 20130311
  Transmission Date: 20140127
  Serious: No
  Sender: FDA-Public Use
  Company Number: US-ABBOTT-12P-163-0928064-00

PATIENT
  Age: 34 Year
  Sex: Female
  Weight: 79.45 kg

DRUGS (1)
  1. LUPRON DEPOT 11.25 MG [Suspect]
     Indication: ENDOMETRIOSIS
     Dates: start: 201202

REACTIONS (8)
  - Vaginal haemorrhage [Not Recovered/Not Resolved]
  - Uterine pain [Unknown]
  - Bladder pain [Unknown]
  - Urinary tract infection [Unknown]
  - Bacterial test positive [Not Recovered/Not Resolved]
  - Bacterial test positive [Not Recovered/Not Resolved]
  - Fluid retention [Not Recovered/Not Resolved]
  - Hydrometra [Not Recovered/Not Resolved]
